FAERS Safety Report 13804645 (Version 1)
Quarter: 2017Q3

REPORT INFORMATION
  Report Type: Spontaneous
  Country: US (occurrence: US)
  Receive Date: 20170728
  Receipt Date: 20170728
  Transmission Date: 20171127
  Serious: No
  Sender: FDA-Public Use
  Company Number: US-ABBVIE-17P-163-2029428-00

PATIENT
  Sex: Male

DRUGS (1)
  1. SYNTHROID [Suspect]
     Active Substance: LEVOTHYROXINE SODIUM
     Indication: PRODUCT USED FOR UNKNOWN INDICATION
     Route: 048
     Dates: start: 20170630, end: 20170630

REACTIONS (5)
  - Tremor [Unknown]
  - Dizziness [Unknown]
  - Headache [Unknown]
  - Tinnitus [Unknown]
  - Impaired driving ability [Unknown]

NARRATIVE: CASE EVENT DATE: 20170630
